FAERS Safety Report 6941180-3 (Version None)
Quarter: 2010Q3

REPORT INFORMATION
  Report Type: 
  Country: None (occurrence: None)
  Receive Date: 20100825
  Receipt Date: 20100610
  Transmission Date: 20110219
  Serious: Yes (Hospitalization)
  Sender: FDA-Public Use
  Company Number: US-BRISTOL-MYERS SQUIBB COMPANY-15143787

PATIENT

DRUGS (2)
  1. ONGLYZA [Suspect]
  2. STEROIDS [Suspect]

REACTIONS (1)
  - BLOOD GLUCOSE INCREASED [None]
